FAERS Safety Report 8564086-5 (Version None)
Quarter: 2012Q3

REPORT INFORMATION
  Report Type: 
  Country: None (occurrence: None)
  Receive Date: 20120803
  Receipt Date: 20120724
  Transmission Date: 20120928
  Serious: Yes (Hospitalization, Other)
  Sender: FDA-Public Use
  Company Number: US-BAYER-2011-042297

PATIENT
  Age: 21 Year
  Sex: Female
  Weight: 164 kg

DRUGS (26)
  1. LAMICTAL [Concomitant]
     Dosage: UNK
     Dates: start: 20060429
  2. ZOLOFT [Concomitant]
     Indication: ANXIETY
  3. CYCLOBENZAPRINE [Concomitant]
     Dosage: UNK
     Dates: start: 20080226, end: 20080601
  4. RISPERDAL [Concomitant]
     Indication: BIPOLAR DISORDER
     Dosage: UNK
     Dates: start: 20050101, end: 20060101
  5. FLEXERIL [Concomitant]
  6. FLUCONAZOLE [Concomitant]
     Dosage: UNK
     Dates: start: 20060703
  7. HYDROCHLOROTHIAZIDE [Concomitant]
     Indication: DIURETIC THERAPY
  8. HYDROCHLOROTHIAZIDE [Concomitant]
     Indication: BLOOD PRESSURE MANAGEMENT
     Dosage: UNK
     Dates: start: 20060204
  9. MORPHINE SULFATE [Concomitant]
  10. YASMIN [Suspect]
     Indication: MENSTRUATION IRREGULAR
     Dosage: UNK
     Dates: start: 20040707, end: 20060828
  11. ZITHROMAX [Concomitant]
     Dosage: UNK
     Dates: start: 20060703
  12. ZOLOFT [Concomitant]
     Indication: DEPRESSION
     Dosage: UNK
     Dates: start: 20060824
  13. ZYRTEC [Concomitant]
  14. DARVOCET [Concomitant]
     Dosage: UNK
     Dates: start: 20080402
  15. NEURONTIN [Concomitant]
     Dosage: UNK
     Dates: start: 20060429
  16. MELOXICAM [Concomitant]
     Indication: BIPOLAR DISORDER
     Dosage: UNK
     Dates: start: 20060101
  17. MELOXICAM [Concomitant]
     Indication: ANXIETY
  18. MEDROXYPROGESTERONE [Concomitant]
     Indication: UTERINE HAEMORRHAGE
     Dosage: UNK
     Dates: start: 20070417, end: 20071211
  19. SYNTHROID [Concomitant]
  20. LEVAQUIN [Concomitant]
     Dosage: UNK
     Dates: start: 20060412, end: 20060419
  21. DILAUDID [Concomitant]
  22. PERCOCET [Concomitant]
     Indication: PAIN
  23. LEVOTHYROXINE SODIUM [Concomitant]
     Dosage: UNK
     Dates: start: 20060207
  24. METFORMIN HYDROCHLORIDE [Concomitant]
     Indication: POLYCYSTIC OVARIES
     Dosage: UNK
     Dates: start: 20060101
  25. IBUPROFEN [Concomitant]
  26. KLOR-CON [Concomitant]
     Dosage: UNK
     Dates: start: 20060404

REACTIONS (20)
  - HAEMORRHAGIC DISORDER [None]
  - PALPITATIONS [None]
  - VOMITING [None]
  - EMOTIONAL DISTRESS [None]
  - ARRHYTHMIA [None]
  - TACHYCARDIA [None]
  - DEEP VEIN THROMBOSIS [None]
  - HEART RATE IRREGULAR [None]
  - ATRIAL FIBRILLATION [None]
  - HYPERHIDROSIS [None]
  - PULMONARY EMBOLISM [None]
  - BRADYCARDIA [None]
  - PULMONARY INFARCTION [None]
  - CHEST PAIN [None]
  - EPISTAXIS [None]
  - ABDOMINAL PAIN [None]
  - DYSPNOEA [None]
  - PAIN [None]
  - ANXIETY [None]
  - INJURY [None]
